FAERS Safety Report 14891230 (Version 1)
Quarter: 2018Q2

REPORT INFORMATION
  Report Type: Spontaneous
  Country: US (occurrence: US)
  Receive Date: 20180514
  Receipt Date: 20180514
  Transmission Date: 20180711
  Serious: No
  Sender: FDA-Public Use
  Company Number: US-UNITED THERAPEUTICS-UNT-2017-014805

PATIENT
  Sex: Female

DRUGS (5)
  1. REMODULIN [Suspect]
     Active Substance: TREPROSTINIL
     Indication: PULMONARY ARTERIAL HYPERTENSION
     Dosage: 0.0012 ?G/KG, CONTINUING
     Route: 058
     Dates: start: 20171012
  2. REMODULIN [Suspect]
     Active Substance: TREPROSTINIL
     Dosage: UNK
     Route: 058
     Dates: start: 20171030
  3. REMODULIN [Suspect]
     Active Substance: TREPROSTINIL
     Dosage: 0.0187 ?G/KG, CONTINUING (AT RATE OF 0.028 ML/HR)
     Route: 058
  4. REMODULIN [Suspect]
     Active Substance: TREPROSTINIL
     Dosage: 0.0173 ?G/KG, CONTINUING
     Route: 058
     Dates: start: 20171018
  5. REMODULIN [Suspect]
     Active Substance: TREPROSTINIL
     Indication: PULMONARY ARTERIAL HYPERTENSION
     Dosage: 0.0065 ?G/KG, CONTINUING
     Route: 058
     Dates: start: 20171011

REACTIONS (4)
  - Myalgia [Unknown]
  - Nausea [Unknown]
  - Headache [Unknown]
  - Pain in extremity [Unknown]

NARRATIVE: CASE EVENT DATE: 20171012
